FAERS Safety Report 24610701 (Version 1)
Quarter: 2024Q4

REPORT INFORMATION
  Report Type: Report from Study
  Country: PK (occurrence: PK)
  Receive Date: 20241112
  Receipt Date: 20241112
  Transmission Date: 20250115
  Serious: Yes (Other)
  Sender: INCYTE
  Company Number: PK-002147023-NVSC2024PK217200

PATIENT

DRUGS (1)
  1. RUXOLITINIB [Suspect]
     Active Substance: RUXOLITINIB
     Indication: Primary myelofibrosis
     Dosage: 15 MG (BD)
     Route: 048
     Dates: start: 20221125, end: 20240202

REACTIONS (1)
  - Tuberculosis [Not Recovered/Not Resolved]

NARRATIVE: CASE EVENT DATE: 20240202
